FAERS Safety Report 7917152-9 (Version None)
Quarter: 2011Q4

REPORT INFORMATION
  Report Type: 
  Country: None (occurrence: None)
  Receive Date: 20111116
  Receipt Date: 20111104
  Transmission Date: 20120403
  Serious: Yes (Hospitalization)
  Sender: FDA-Public Use
  Company Number: DE-ELI_LILLY_AND_COMPANY-DE201111001696

PATIENT
  Sex: Female

DRUGS (5)
  1. METOPROLOL SUCCINATE [Concomitant]
  2. FORTEO [Suspect]
     Indication: OSTEOPOROSIS
     Dosage: UNK, QD
     Route: 058
     Dates: start: 20100526
  3. ACETYLSALICYLIC ACID SRT [Concomitant]
  4. AMLODIPINE BESYLATE [Concomitant]
  5. PANTOPRAZOLE SODIUM [Concomitant]

REACTIONS (3)
  - DEPRESSED MOOD [None]
  - ABDOMINAL PAIN UPPER [None]
  - DECREASED APPETITE [None]
